FAERS Safety Report 21641364 (Version 1)
Quarter: 2022Q4

REPORT INFORMATION
  Report Type: Spontaneous
  Country: IT (occurrence: None)
  Receive Date: 20221125
  Receipt Date: 20221125
  Transmission Date: 20230112
  Serious: Yes (Hospitalization, Other)
  Sender: FDA-Public Use
  Company Number: IT-ADIENNEP-2022AD000962

PATIENT
  Sex: Female

DRUGS (3)
  1. THIOTEPA [Suspect]
     Active Substance: THIOTEPA
     Indication: Allogenic stem cell transplantation
     Dosage: 5 MG/KG DAYS -7, -6
  2. FLUDARABINE [Suspect]
     Active Substance: FLUDARABINE PHOSPHATE
     Indication: Allogenic stem cell transplantation
     Dosage: 50 MG/M2 DAYS -5, -4, -3
  3. BUSULFAN [Suspect]
     Active Substance: BUSULFAN
     Indication: Allogenic stem cell transplantation
     Dosage: 3.2 MG/KG DAYS -5, -4, -3

REACTIONS (8)
  - Pneumonia [Recovered/Resolved]
  - Chest pain [Unknown]
  - Pyrexia [Recovered/Resolved]
  - Neutropenia [Unknown]
  - Obliterative bronchiolitis [Unknown]
  - Pneumonia bacterial [Recovered/Resolved]
  - Nocardiosis [Recovered/Resolved]
  - Lung abscess [Unknown]
